FAERS Safety Report 4724938-0 (Version None)
Quarter: 2005Q3

REPORT INFORMATION
  Report Type: 
  Country: None (occurrence: None)
  Receive Date: 20050726
  Receipt Date: 20050725
  Transmission Date: 20060218
  Serious: Yes (Death, Hospitalization)
  Sender: FDA-Public Use
  Company Number: CA-SANOFI-SYNTHELABO-F01200501325

PATIENT
  Sex: Female

DRUGS (9)
  1. OXALIPLATIN [Suspect]
     Indication: COLORECTAL CANCER METASTATIC
     Route: 042
     Dates: start: 20050125, end: 20050125
  2. OXALIPLATIN [Suspect]
     Route: 042
     Dates: start: 20050101, end: 20050101
  3. FLUOROURACIL [Suspect]
     Dosage: 625 MG IV BOLUS + 950 MG ON DAYS 1 AND 2 Q2W
     Route: 042
     Dates: start: 20050125, end: 20050126
  4. FLUOROURACIL [Suspect]
     Dosage: 625 MG IV BOLUS + 950 MG ON DAYS 1 AND 2 Q2W
     Route: 042
     Dates: start: 20050101, end: 20050101
  5. LEUCOVORIN [Suspect]
     Dosage: 316 MG GIVEN ON DAYS 1 AND 2 Q2W
     Route: 042
     Dates: start: 20050125, end: 20050126
  6. LEUCOVORIN [Suspect]
     Dosage: 316 MG GIVEN ON DAYS 1 AND 2 Q2W
     Route: 042
     Dates: start: 20050101, end: 20050101
  7. PANTOPRAZOLE SODIUM [Concomitant]
     Dosage: UNK
     Route: 065
     Dates: start: 20050615, end: 20050629
  8. RANITIDINE [Concomitant]
     Dosage: UNK
     Route: 065
     Dates: start: 20050221, end: 20050629
  9. COUMADIN [Concomitant]
     Dosage: UNK
     Route: 065
     Dates: start: 20030615, end: 20050629

REACTIONS (5)
  - HYPONATRAEMIA [None]
  - NEUTROPENIA [None]
  - PNEUMONIA [None]
  - TACHYCARDIA [None]
  - TACHYPNOEA [None]
